FAERS Safety Report 10700365 (Version 1)
Quarter: 2015Q1

REPORT INFORMATION
  Report Type: Spontaneous
  Country: US (occurrence: US)
  Receive Date: 20150109
  Receipt Date: 20150109
  Transmission Date: 20150721
  Serious: No
  Sender: FDA-Public Use
  Company Number: US-EMD SERONO-8004071

PATIENT
  Sex: Female

DRUGS (2)
  1. REBIF [Suspect]
     Active Substance: INTERFERON BETA-1A
     Indication: MULTIPLE SCLEROSIS
     Dates: start: 2005, end: 2012
  2. REBIF [Suspect]
     Active Substance: INTERFERON BETA-1A

REACTIONS (3)
  - Central nervous system lesion [Unknown]
  - Urticaria [Unknown]
  - Lymphocyte count decreased [Unknown]
